FAERS Safety Report 4576114-2 (Version None)
Quarter: 2005Q1

REPORT INFORMATION
  Report Type: 
  Country: None (occurrence: None)
  Receive Date: 20050204
  Receipt Date: 20050128
  Transmission Date: 20050727
  Serious: Yes (Hospitalization, Disabling)
  Sender: FDA-Public Use
  Company Number: 2003041486

PATIENT
  Age: 64 Year
  Sex: Male
  Weight: 94 kg

DRUGS (9)
  1. TAHOR (ATORVASTATIN) [Suspect]
     Indication: HYPERCHOLESTEROLAEMIA
     Dosage: 10 MG (DAILY)
     Dates: start: 19990501, end: 20030101
  2. IRBESARTAN [Concomitant]
  3. LACIDIPINE (LACIDIPINE) [Concomitant]
  4. RAMIPRIL [Concomitant]
  5. ACETYLSALICYLIC ACID SRT [Concomitant]
  6. GLIMEPIRIDE [Concomitant]
  7. FOLIC ACID [Concomitant]
  8. TERBINAFINE HCL [Concomitant]
  9. HYDROCHLOROTHIAZIDE [Concomitant]

REACTIONS (4)
  - AMYOTROPHY [None]
  - BALANCE DISORDER [None]
  - INJURY [None]
  - TENDON RUPTURE [None]
